FAERS Safety Report 11581480 (Version 1)
Quarter: 2015Q4

REPORT INFORMATION
  Report Type: Spontaneous
  Country: US (occurrence: US)
  Receive Date: 20151001
  Receipt Date: 20151001
  Transmission Date: 20160304
  Serious: No
  Sender: FDA-Public Use
  Company Number: US-ROCHE-686135

PATIENT
  Sex: Male
  Weight: 104.3 kg

DRUGS (5)
  1. PAXIL [Concomitant]
     Active Substance: PAROXETINE HYDROCHLORIDE
     Route: 065
  2. PEGASYS [Suspect]
     Active Substance: PEGINTERFERON ALFA-2A
     Indication: HEPATITIS C
     Dosage: INDICATION REPORTED AS: CIRRHOSIS, HEP C, LEVEL 4, STAGE 2
     Route: 065
  3. ATRIPLA [Concomitant]
     Active Substance: EFAVIRENZ\EMTRICITABINE\TENOFOVIR DISOPROXIL FUMARATE
     Route: 065
  4. COPEGUS [Suspect]
     Active Substance: RIBAVIRIN
     Indication: HEPATITIS C
     Dosage: INDICATION REPORTED AS: CIRRHOSIS, HEP C, LEVEL 4, STAGE 2
     Route: 048
  5. LORAZEPAM. [Concomitant]
     Active Substance: LORAZEPAM
     Route: 065

REACTIONS (5)
  - Chills [Unknown]
  - Hypersomnia [Unknown]
  - Influenza like illness [Unknown]
  - Vomiting [Unknown]
  - Drug ineffective [Unknown]
